FAERS Safety Report 9104457 (Version 1)
Quarter: 2013Q1

REPORT INFORMATION
  Report Type: Spontaneous
  Country: IT (occurrence: IT)
  Receive Date: 20130220
  Receipt Date: 20130220
  Transmission Date: 20140127
  Serious: Yes (Hospitalization)
  Sender: FDA-Public Use
  Company Number: IT-ROXANE LABORATORIES, INC.-2013-RO-00262RO

PATIENT
  Age: 52 Year
  Sex: Female

DRUGS (1)
  1. TRIAZOLAM [Suspect]

REACTIONS (1)
  - Pulmonary oedema [Recovered/Resolved]
